FAERS Safety Report 24258122 (Version 1)
Quarter: 2024Q3

REPORT INFORMATION
  Report Type: Spontaneous
  Country: PL (occurrence: PL)
  Receive Date: 20240828
  Receipt Date: 20240828
  Transmission Date: 20241017
  Serious: Yes (Hospitalization)
  Sender: TASMAN PHARMA
  Company Number: PL-TASMAN PHARMA, INC.-2024TSM00223

PATIENT
  Age: 23 Year
  Sex: Female

DRUGS (10)
  1. CLOZAPINE [Suspect]
     Active Substance: CLOZAPINE
     Indication: Schizophrenia
     Dosage: UNK
     Dates: start: 2012
  2. CLOZAPINE [Suspect]
     Active Substance: CLOZAPINE
     Dosage: 225 MG, 1X/DAY
     Dates: end: 202202
  3. COVID-19 VACCINE NOS [Suspect]
     Active Substance: COVID-19 VACCINE
     Indication: COVID-19 immunisation
     Dosage: UNK
     Dates: start: 202202, end: 202202
  4. ARIPIPRAZOLE [Suspect]
     Active Substance: ARIPIPRAZOLE
     Indication: Schizophrenia
     Dosage: UNK
     Dates: start: 202202
  5. QUETIAPINE [Suspect]
     Active Substance: QUETIAPINE
     Indication: Schizophrenia
     Dosage: UNK
     Dates: start: 202203, end: 202204
  6. RISPERIDONE [Suspect]
     Active Substance: RISPERIDONE
     Indication: Schizophrenia
     Dosage: UNK
     Dates: start: 202204, end: 202207
  7. LURASIDONE [Suspect]
     Active Substance: LURASIDONE
     Indication: Schizophrenia
     Dosage: INITIAL TREATMENT
     Dates: start: 202207, end: 202208
  8. LURASIDONE [Suspect]
     Active Substance: LURASIDONE
     Dosage: 111 MG
     Dates: start: 202208, end: 202211
  9. LURASIDONE [Suspect]
     Active Substance: LURASIDONE
     Dosage: REINTRODUCED - TREATMENT DESCRIPTION NOT SPECIFIED
     Dates: start: 202211
  10. AMISULPRIDE [Suspect]
     Active Substance: AMISULPRIDE
     Indication: Schizophrenia
     Dosage: UNK
     Dates: start: 202211, end: 202211

REACTIONS (3)
  - Vaccine interaction [Recovered/Resolved]
  - Drug-disease interaction [Recovered/Resolved]
  - Neutropenia [Unknown]

NARRATIVE: CASE EVENT DATE: 20220201
